FAERS Safety Report 9838900 (Version 3)
Quarter: 2014Q2

REPORT INFORMATION
  Report Type: Spontaneous
  Country: GB (occurrence: None)
  Receive Date: 20140116
  Receipt Date: 20140506
  Transmission Date: 20141212
  Serious: Yes (Other)
  Sender: FDA-Public Use
  Company Number: AUR-APL-2014-00173

PATIENT
  Sex: 0

DRUGS (1)
  1. SERTRALINE [Suspect]
     Indication: DEPRESSION
     Dosage: (50 MG), TRANSPLACENTAL
     Route: 064
     Dates: start: 20010101

REACTIONS (4)
  - Foetal placental thrombosis [None]
  - Maternal drugs affecting foetus [None]
  - Small for dates baby [None]
  - Foetal growth restriction [None]
